FAERS Safety Report 7831542-4 (Version None)
Quarter: 2011Q4

REPORT INFORMATION
  Report Type: 
  Country: None (occurrence: None)
  Receive Date: 20111021
  Receipt Date: 20111006
  Transmission Date: 20120403
  Serious: Yes (Other)
  Sender: FDA-Public Use
  Company Number: PHHY2011BR88925

PATIENT
  Age: 84 Year
  Sex: Female

DRUGS (2)
  1. CIBALENA [Suspect]
     Dosage: 1 DF, EVERY 6 OR 8 HOURS
  2. DICLOFENAC POTASSIUM [Suspect]
     Indication: MIGRAINE
     Dosage: 1 DF,

REACTIONS (2)
  - HEADACHE [None]
  - THYROID DISORDER [None]
